FAERS Safety Report 12658856 (Version 1)
Quarter: 2016Q3

REPORT INFORMATION
  Report Type: Spontaneous
  Country: US (occurrence: US)
  Receive Date: 20160817
  Receipt Date: 20160817
  Transmission Date: 20161109
  Serious: No
  Sender: FDA-Public Use
  Company Number: US-ENDO PHARMACEUTICALS INC.-2016-004135

PATIENT
  Age: 37 Year
  Sex: Female

DRUGS (1)
  1. INDOMETHACIN CAPSULES [Suspect]
     Active Substance: INDOMETHACIN
     Route: 065

REACTIONS (5)
  - Suicidal ideation [Unknown]
  - Tremor [Unknown]
  - Headache [Unknown]
  - Nightmare [Unknown]
  - Anxiety [Unknown]

NARRATIVE: CASE EVENT DATE: 20120601
